FAERS Safety Report 7635310-8 (Version None)
Quarter: 2011Q3

REPORT INFORMATION
  Report Type: 
  Country: None (occurrence: None)
  Receive Date: 20110726
  Receipt Date: 20110725
  Transmission Date: 20111222
  Serious: Yes (Death)
  Sender: FDA-Public Use
  Company Number: DE-ELI_LILLY_AND_COMPANY-DE201107006416

PATIENT
  Age: 58 Year
  Sex: Female
  Weight: 150 kg

DRUGS (4)
  1. PRASUGREL HYDROCHLORIDE [Suspect]
     Dosage: 10 MG, UNK
     Dates: start: 20110615
  2. ASPISOL [Concomitant]
  3. PRASUGREL HYDROCHLORIDE [Suspect]
     Indication: ACUTE CORONARY SYNDROME
     Dosage: 60 MG, UNK
     Dates: start: 20110615
  4. HEPARIN [Concomitant]

REACTIONS (3)
  - CARDIOGENIC SHOCK [None]
  - PULMONARY OEDEMA [None]
  - RENAL FAILURE [None]
